FAERS Safety Report 9504584 (Version 2)
Quarter: 2013Q4

REPORT INFORMATION
  Report Type: Report from Study
  Country: US (occurrence: US)
  Receive Date: 20130906
  Receipt Date: 20131223
  Transmission Date: 20140711
  Serious: Yes (Death, Life-Threatening)
  Sender: FDA-Public Use
  Company Number: US-ROCHE-1270554

PATIENT
  Age: 46 Year
  Sex: Male
  Weight: 86 kg

DRUGS (3)
  1. BEVACIZUMAB [Suspect]
     Indication: HEAD AND NECK CANCER METASTATIC
     Dosage: OVER 30-90 MIN, DAY 1. LAST DOSE RECEIVED ON 01/AUG/2013.
     Route: 042
     Dates: start: 20130711
  2. DOCETAXEL [Suspect]
     Indication: HEAD AND NECK CANCER METASTATIC
     Dosage: OVER 1 HR, DAY 1. LAST DOSE RECEIVED ON 01/AUG/2013.
     Route: 042
     Dates: start: 20130711
  3. CARBOPLATIN [Suspect]
     Indication: HEAD AND NECK CANCER METASTATIC
     Dosage: OVER 30 MINUTES ON DAY 1. DOSE - 6 AUC. LAST DOSE RECEIVED ON 01/AUG/2013.
     Route: 042
     Dates: start: 20130711

REACTIONS (2)
  - Gastric haemorrhage [Fatal]
  - Cardiac arrest [Unknown]
